FAERS Safety Report 6404984-1 (Version None)
Quarter: 2009Q4

REPORT INFORMATION
  Report Type: 
  Country: None (occurrence: None)
  Receive Date: 20091019
  Receipt Date: 20091007
  Transmission Date: 20100525
  Serious: Yes (Other)
  Sender: FDA-Public Use
  Company Number: GB-PFIZER INC-2009237988

PATIENT
  Age: 49 Year

DRUGS (3)
  1. VORICONAZOLE [Suspect]
     Indication: PROPHYLAXIS
     Dosage: 200 MG, 2X/DAY
     Route: 048
     Dates: start: 20071101, end: 20090201
  2. ARA-C [Concomitant]
  3. FLUDARABINE [Concomitant]

REACTIONS (1)
  - CATARACT [None]
